FAERS Safety Report 14794374 (Version 1)
Quarter: 2018Q2

REPORT INFORMATION
  Report Type: Spontaneous
  Country: DE (occurrence: DE)
  Receive Date: 20180423
  Receipt Date: 20180423
  Transmission Date: 20180711
  Serious: Yes (Hospitalization)
  Sender: FDA-Public Use
  Company Number: US-ASTRAZENECA-2018SE53624

PATIENT
  Age: 1 Year
  Sex: Female

DRUGS (12)
  1. SYNAGIS [Suspect]
     Active Substance: PALIVIZUMAB
     Indication: ANTIVIRAL PROPHYLAXIS
     Dosage: 15 MG /KG BODY WEIGHT
     Route: 030
     Dates: start: 20180309, end: 20180309
  2. SYNAGIS [Suspect]
     Active Substance: PALIVIZUMAB
     Indication: PREMATURE BABY
     Dosage: 15 MG /KG BODY WEIGHT
     Route: 030
     Dates: start: 20180309, end: 20180309
  3. SYNAGIS [Suspect]
     Active Substance: PALIVIZUMAB
     Indication: PREMATURE BABY
     Dosage: 15 MG /KG BODY WEIGHT
     Route: 030
  4. SYNAGIS [Suspect]
     Active Substance: PALIVIZUMAB
     Indication: ANTIVIRAL PROPHYLAXIS
     Dosage: 15 MG /KG BODY WEIGHT
     Route: 030
     Dates: start: 20180111, end: 20180111
  5. SYNAGIS [Suspect]
     Active Substance: PALIVIZUMAB
     Indication: PREMATURE BABY
     Dosage: 15 MG /KG BODY WEIGHT
     Route: 030
     Dates: start: 20180111, end: 20180111
  6. SYNAGIS [Suspect]
     Active Substance: PALIVIZUMAB
     Indication: ANTIVIRAL PROPHYLAXIS
     Dosage: 15 MG /KG BODY WEIGHT
     Route: 030
  7. SYNAGIS [Suspect]
     Active Substance: PALIVIZUMAB
     Indication: HEART DISEASE CONGENITAL
     Dosage: 15 MG /KG BODY WEIGHT
     Route: 030
     Dates: start: 20180111, end: 20180111
  8. SYNAGIS [Suspect]
     Active Substance: PALIVIZUMAB
     Indication: HEART DISEASE CONGENITAL
     Dosage: 15 MG /KG BODY WEIGHT
     Route: 030
     Dates: start: 20180209, end: 20180209
  9. SYNAGIS [Suspect]
     Active Substance: PALIVIZUMAB
     Indication: HEART DISEASE CONGENITAL
     Dosage: 15 MG /KG BODY WEIGHT
     Route: 030
  10. SYNAGIS [Suspect]
     Active Substance: PALIVIZUMAB
     Indication: HEART DISEASE CONGENITAL
     Dosage: 15 MG /KG BODY WEIGHT
     Route: 030
     Dates: start: 20180309, end: 20180309
  11. SYNAGIS [Suspect]
     Active Substance: PALIVIZUMAB
     Indication: ANTIVIRAL PROPHYLAXIS
     Dosage: 15 MG /KG BODY WEIGHT
     Route: 030
     Dates: start: 20180209, end: 20180209
  12. SYNAGIS [Suspect]
     Active Substance: PALIVIZUMAB
     Indication: PREMATURE BABY
     Dosage: 15 MG /KG BODY WEIGHT
     Route: 030
     Dates: start: 20180209, end: 20180209

REACTIONS (2)
  - Respiratory syncytial virus infection [Recovered/Resolved]
  - Adverse event [Unknown]

NARRATIVE: CASE EVENT DATE: 2018
